FAERS Safety Report 7551459-2 (Version None)
Quarter: 2011Q2

REPORT INFORMATION
  Report Type: 
  Country: None (occurrence: None)
  Receive Date: 20110616
  Receipt Date: 20110607
  Transmission Date: 20111010
  Serious: Yes (Death, Life-Threatening, Hospitalization, Other)
  Sender: FDA-Public Use
  Company Number: US-ROCHE-782486

PATIENT
  Age: 70 Year

DRUGS (3)
  1. BEVACIZUMAB [Suspect]
     Dosage: FREQUENCY: OVER 30-90 MIN ON DAY 1 BEGINNING WITH CYCLE 2, LAST DOSE PRIOR TO SAE: 03 NOVEMBER 2010
     Route: 042
  2. PACLITAXEL [Suspect]
     Dosage: FREQUENCY: OVER 1 HOUR ON DAYS 1, 8 AND 15.
     Route: 042
     Dates: start: 20100804
  3. CARBOPLATIN [Suspect]
     Dosage: DOSE: AUC 6 IV ON DAY 1.
     Route: 042
     Dates: start: 20100804

REACTIONS (3)
  - GASTROINTESTINAL NECROSIS [None]
  - DISEASE PROGRESSION [None]
  - NEUTROPHIL COUNT DECREASED [None]
